FAERS Safety Report 5592160-4 (Version None)
Quarter: 2008Q1

REPORT INFORMATION
  Report Type: 
  Country: None (occurrence: None)
  Receive Date: 20080115
  Receipt Date: 20071022
  Transmission Date: 20080703
  Serious: No
  Sender: FDA-Public Use
  Company Number: US-ABBOTT-07P-163-0421443-00

PATIENT
  Sex: Female

DRUGS (1)
  1. ADVICOR [Suspect]
     Indication: BLOOD CHOLESTEROL
     Dosage: UNIT DOSE:  500MG/20MG
     Route: 048
     Dates: start: 20071021

REACTIONS (2)
  - BURNING SENSATION [None]
  - FEELING HOT [None]
